FAERS Safety Report 20380669 (Version 2)
Quarter: 2022Q1

REPORT INFORMATION
  Report Type: Spontaneous
  Country: US (occurrence: US)
  Receive Date: 20220127
  Receipt Date: 20220304
  Transmission Date: 20220423
  Serious: Yes (Death)
  Sender: FDA-Public Use
  Company Number: US-MTPC-MTDA2022-0001563

PATIENT
  Sex: Female

DRUGS (4)
  1. RADICAVA [Suspect]
     Active Substance: EDARAVONE
     Indication: Amyotrophic lateral sclerosis
     Dosage: 60 MILLIGRAM, QD X 14 DAYS, THEN 14 DAYS BREAK
     Route: 042
     Dates: start: 20210317
  2. RADICAVA [Suspect]
     Active Substance: EDARAVONE
     Dosage: 60 MILLIGRAM, QD X 10 DAY IN 14 DAYS PERIOD, THEN 14 DAY BREAK
     Route: 042
     Dates: end: 202105
  3. TIGLUTIK [Concomitant]
     Active Substance: RILUZOLE
     Indication: Product used for unknown indication
     Dosage: UNK
     Dates: start: 202009, end: 202105
  4. METOPROLOL [Concomitant]
     Active Substance: METOPROLOL
     Indication: Product used for unknown indication
     Dosage: 12.5, BID
     Route: 065

REACTIONS (1)
  - Amyotrophic lateral sclerosis [Fatal]
